FAERS Safety Report 16348611 (Version 1)
Quarter: 2019Q2

REPORT INFORMATION
  Report Type: Spontaneous
  Country: GB (occurrence: GB)
  Receive Date: 20190523
  Receipt Date: 20190523
  Transmission Date: 20190711
  Serious: Yes (Other)
  Sender: FDA-Public Use
  Company Number: GB-JNJFOC-20190528439

PATIENT
  Sex: Female

DRUGS (3)
  1. REVLIMID [Concomitant]
     Active Substance: LENALIDOMIDE
     Route: 065
  2. ACICLOVIR [Concomitant]
     Active Substance: ACYCLOVIR
     Route: 065
  3. XARELTO [Suspect]
     Active Substance: RIVAROXABAN
     Indication: PRODUCT USED FOR UNKNOWN INDICATION
     Route: 048

REACTIONS (1)
  - Tumour rupture [Unknown]

NARRATIVE: CASE EVENT DATE: 201903
